FAERS Safety Report 9026196 (Version 2)
Quarter: 2013Q1

REPORT INFORMATION
  Report Type: Spontaneous
  Country: US (occurrence: None)
  Receive Date: 20121207
  Receipt Date: 20121231
  Transmission Date: 20140127
  Serious: Yes (Hospitalization)
  Sender: FDA-Public Use
  Company Number: UTC-026237

PATIENT
  Age: 51 Year
  Sex: Male
  Weight: 155.9 kg

DRUGS (5)
  1. REMODULIN (10 MILLIGRAM/MILLILITERS, INJECTION FOR INFUSION) (TREPROSTINIL SODIUM) [Suspect]
     Indication: PULMONARY ARTERIAL HYPERTENSION
     Dosage: 115.2 UG/KG (0.08 UG/KG,1 IN 1 MIN), SUBCUTANEOUS
     Route: 058
     Dates: start: 20121022
  2. REVATIO (SILDENAFIL CITRATE) [Concomitant]
  3. METOLAZONE [Concomitant]
  4. SPIRONOLACTONE [Concomitant]
  5. BUMEX (BUMETANIDE) [Concomitant]

REACTIONS (2)
  - Loss of consciousness [None]
  - Orthostatic hypotension [None]
